FAERS Safety Report 6428932-3 (Version None)
Quarter: 2009Q4

REPORT INFORMATION
  Report Type: 
  Country: None (occurrence: None)
  Receive Date: 20091102
  Receipt Date: 20091016
  Transmission Date: 20100525
  Serious: Yes (Death, Hospitalization)
  Sender: FDA-Public Use
  Company Number: A-US2009-27513

PATIENT
  Age: 82 Year
  Sex: Female

DRUGS (16)
  1. TRACLEER [Suspect]
     Indication: PULMONARY ARTERIAL HYPERTENSION
     Dosage: 125 MG, BID, ORAL; 125 MG, QPM, ORAL ;  62.5 MG, QAM, ORAL;  62.5 MG, BID, ORAL
     Route: 048
     Dates: start: 20090720, end: 20090908
  2. TRACLEER [Suspect]
     Indication: PULMONARY ARTERIAL HYPERTENSION
     Dosage: 125 MG, BID, ORAL; 125 MG, QPM, ORAL ;  62.5 MG, QAM, ORAL;  62.5 MG, BID, ORAL
     Route: 048
     Dates: start: 20090909, end: 20090920
  3. TRACLEER [Suspect]
     Indication: PULMONARY ARTERIAL HYPERTENSION
     Dosage: 125 MG, BID, ORAL; 125 MG, QPM, ORAL ;  62.5 MG, QAM, ORAL;  62.5 MG, BID, ORAL
     Route: 048
     Dates: start: 20090909, end: 20090920
  4. TRACLEER [Suspect]
     Indication: PULMONARY ARTERIAL HYPERTENSION
     Dosage: 125 MG, BID, ORAL; 125 MG, QPM, ORAL ;  62.5 MG, QAM, ORAL;  62.5 MG, BID, ORAL
     Route: 048
     Dates: start: 20090921, end: 20090930
  5. FLOLAN [Concomitant]
  6. LASIX [Concomitant]
  7. POTASSIUM (POTASSIUM) [Concomitant]
  8. MAGNESIUM (MAGNESIUM) [Concomitant]
  9. ASPIRIN [Concomitant]
  10. NEXIUM [Concomitant]
  11. PRAVASTATIN [Concomitant]
  12. DIGOXIN [Concomitant]
  13. MULTIVITAMIN [Concomitant]
  14. LAXATIVES [Concomitant]
  15. STOOL SOFTENER (DOCUSATE SODIUM) [Concomitant]
  16. COUMADIN [Concomitant]

REACTIONS (7)
  - ANAEMIA [None]
  - CARDIOMEGALY [None]
  - DIABETES MELLITUS [None]
  - DISEASE PROGRESSION [None]
  - OEDEMA PERIPHERAL [None]
  - PULMONARY HYPERTENSION [None]
  - RENAL FAILURE [None]
